FAERS Safety Report 12709929 (Version 1)
Quarter: 2016Q3

REPORT INFORMATION
  Report Type: Spontaneous
  Country: BR (occurrence: BR)
  Receive Date: 20160902
  Receipt Date: 20160902
  Transmission Date: 20161109
  Serious: Yes (Hospitalization, Other)
  Sender: FDA-Public Use
  Company Number: BR-ASTRAZENECA-2016SE92776

PATIENT
  Age: 52 Year
  Sex: Female

DRUGS (2)
  1. PULMICORT TURBUHALER [Suspect]
     Active Substance: BUDESONIDE
     Indication: LUNG NEOPLASM MALIGNANT
     Dosage: 0.5MG/ML, ONE FLASK, DAILY
     Route: 055
     Dates: start: 2015, end: 201608
  2. PULMICORT TURBUHALER [Suspect]
     Active Substance: BUDESONIDE
     Indication: LUNG NEOPLASM MALIGNANT
     Dosage: 0.5MG/ML, ONE FLASK, TWICE DAILY
     Route: 055
     Dates: start: 201608

REACTIONS (3)
  - Product use issue [Unknown]
  - Malignant neoplasm progression [Not Recovered/Not Resolved]
  - Off label use [Not Recovered/Not Resolved]

NARRATIVE: CASE EVENT DATE: 2015
